FAERS Safety Report 26131902 (Version 1)
Quarter: 2025Q4

REPORT INFORMATION
  Report Type: Spontaneous
  Country: EU (occurrence: EU)
  Receive Date: 20251208
  Receipt Date: 20251208
  Transmission Date: 20260118
  Serious: Yes (Other)
  Sender: PFIZER
  Company Number: None

PATIENT
  Age: 59 Year
  Sex: Female

DRUGS (7)
  1. PANTOPRAZOLE [Suspect]
     Active Substance: PANTOPRAZOLE
     Dosage: 20 MG, 1X/DAY
     Route: 048
     Dates: start: 20240124
  2. RISPERIDONE [Suspect]
     Active Substance: RISPERIDONE
     Dosage: 6 MG, 1X/DAY
     Route: 048
     Dates: start: 20240124, end: 20240312
  3. POLYETHYLENE GLYCOL 4000 [Concomitant]
     Active Substance: POLYETHYLENE GLYCOL 4000
     Dosage: 2 DF, 1X/DAY
     Route: 048
     Dates: start: 20240124
  4. TRIHEXYPHENIDYL HYDROCHLORIDE [Concomitant]
     Active Substance: TRIHEXYPHENIDYL HYDROCHLORIDE
     Indication: Parkinsonism
     Dosage: 2 MG, 1X/DAY
     Route: 048
     Dates: start: 20240124
  5. LOXAPINE SUCCINATE [Concomitant]
     Active Substance: LOXAPINE SUCCINATE
     Dosage: 175 MG, 1X/DAY
     Route: 048
     Dates: start: 20240124
  6. TERALITHE [Concomitant]
     Active Substance: LITHIUM CARBONATE
     Dosage: 800 MG, 1X/DAY
     Route: 048
     Dates: start: 20240124
  7. OXAZEPAM [Concomitant]
     Active Substance: OXAZEPAM
     Dosage: 200 MG, 1X/DAY
     Route: 048
     Dates: start: 20240124

REACTIONS (1)
  - Hypertransaminasaemia [Recovered/Resolved]

NARRATIVE: CASE EVENT DATE: 20240221
